FAERS Safety Report 17792096 (Version 1)
Quarter: 2020Q2

REPORT INFORMATION
  Report Type: Spontaneous
  Country: US (occurrence: US)
  Receive Date: 20200515
  Receipt Date: 20200515
  Transmission Date: 20200714
  Serious: No
  Sender: FDA-Public Use
  Company Number: US-ADDMEDICA-202000005

PATIENT
  Age: 61 Year
  Sex: Male

DRUGS (2)
  1. HYDROXYUREA. [Suspect]
     Active Substance: HYDROXYUREA
     Indication: ESSENTIAL THROMBOCYTHAEMIA
     Route: 065
  2. ACETYLSALICYLIC ACID [Concomitant]
     Active Substance: ASPIRIN
     Indication: ESSENTIAL THROMBOCYTHAEMIA
     Route: 065

REACTIONS (3)
  - Tongue pigmentation [Unknown]
  - Nail pigmentation [Unknown]
  - Pigmentation disorder [Unknown]
